FAERS Safety Report 12378220 (Version 1)
Quarter: 2016Q2

REPORT INFORMATION
  Report Type: Spontaneous
  Country: US (occurrence: US)
  Receive Date: 20160517
  Receipt Date: 20160517
  Transmission Date: 20160815
  Serious: No
  Sender: FDA-Public Use
  Company Number: US-JNJFOC-20160403886

PATIENT
  Age: 76 Year
  Sex: Female
  Weight: 112.49 kg

DRUGS (6)
  1. MOTRIN 800MG PRESCRIPTION [Concomitant]
     Indication: ARTHRITIS
     Route: 065
  2. ACETAMINOPHEN\HYDROCODONE BITARTRATE [Concomitant]
     Active Substance: ACETAMINOPHEN\HYDROCODONE BITARTRATE
     Indication: MYALGIA
     Dosage: 1 TAB Q8HR PRN
     Route: 065
  3. TYLENOL 8 HR ARTHRITIS PAIN [Suspect]
     Active Substance: ACETAMINOPHEN
     Route: 048
  4. GABAPENTIN. [Concomitant]
     Active Substance: GABAPENTIN
     Indication: MYALGIA
     Route: 065
  5. TYLENOL 8 HR ARTHRITIS PAIN [Suspect]
     Active Substance: ACETAMINOPHEN
     Indication: ARTHRALGIA
     Dosage: 1-2 CAPLETS, EVERY 12 HOURS, TWICE A DAY
     Route: 048
  6. TRAMADOL. [Concomitant]
     Active Substance: TRAMADOL
     Indication: MYALGIA
     Route: 065

REACTIONS (5)
  - Inappropriate schedule of drug administration [Unknown]
  - Off label use [Unknown]
  - Drug administration error [Unknown]
  - Drug ineffective [Unknown]
  - Incorrect dose administered [Unknown]
